FAERS Safety Report 14125635 (Version 2)
Quarter: 2018Q1

REPORT INFORMATION
  Report Type: Spontaneous
  Country: US (occurrence: US)
  Receive Date: 20171025
  Receipt Date: 20180111
  Transmission Date: 20180508
  Serious: Yes (Other)
  Sender: FDA-Public Use
  Company Number: US-TEVA-819467USA

PATIENT
  Sex: Female

DRUGS (2)
  1. ESTRADIOL. [Suspect]
     Active Substance: ESTRADIOL
     Dosage: 2.8571 MILLIGRAM DAILY; AT BEDTIME
     Route: 067
  2. ESTRACE [Concomitant]
     Active Substance: ESTRADIOL
     Route: 065

REACTIONS (4)
  - Cervix haemorrhage uterine [Unknown]
  - Discomfort [Unknown]
  - Product quality issue [Unknown]
  - Uterine cervical laceration [Unknown]

NARRATIVE: CASE EVENT DATE: 201710
